FAERS Safety Report 12479429 (Version 1)
Quarter: 2016Q2

REPORT INFORMATION
  Report Type: Spontaneous
  Country: US (occurrence: US)
  Receive Date: 20160620
  Receipt Date: 20160620
  Transmission Date: 20160815
  Serious: No
  Sender: FDA-Public Use
  Company Number: US-ASTRAZENECA-2016SE48306

PATIENT
  Age: 25005 Day
  Sex: Male
  Weight: 102.5 kg

DRUGS (3)
  1. SYMBICORT [Suspect]
     Active Substance: BUDESONIDE\FORMOTEROL FUMARATE DIHYDRATE
     Indication: ASTHMA
     Dosage: 160/4.5 MCG, 2 PUFFS TWO TIMES A DAY.
     Route: 055
     Dates: start: 20160428
  2. SYMBICORT [Suspect]
     Active Substance: BUDESONIDE\FORMOTEROL FUMARATE DIHYDRATE
     Indication: MULTIPLE ALLERGIES
     Dosage: 160/4.5 MCG, 2 PUFFS TWO TIMES A DAY.
     Route: 055
     Dates: start: 20160428
  3. ALBUTEROL. [Concomitant]
     Active Substance: ALBUTEROL
     Dosage: TWO TIMES A DAY
     Route: 055

REACTIONS (2)
  - Loss of consciousness [Unknown]
  - Cold sweat [Unknown]

NARRATIVE: CASE EVENT DATE: 20160428
